FAERS Safety Report 4606287-4 (Version None)
Quarter: 2005Q2

REPORT INFORMATION
  Report Type: 
  Country: None (occurrence: None)
  Receive Date: 20050303
  Receipt Date: 20041215
  Transmission Date: 20051028
  Serious: No
  Sender: FDA-Public Use
  Company Number: 200421185BWH

PATIENT
  Age: 69 Year
  Sex: Male

DRUGS (3)
  1. LEVITRA [Suspect]
     Indication: ERECTILE DYSFUNCTION
     Dosage: 5 MG, TOTAL DAILY, ORAL;  10 MG, TOTAL DAILY, ORAL
     Route: 048
     Dates: start: 20041101, end: 20041201
  2. LEVITRA [Suspect]
     Indication: ERECTILE DYSFUNCTION
     Dosage: 5 MG, TOTAL DAILY, ORAL;  10 MG, TOTAL DAILY, ORAL
     Route: 048
     Dates: start: 20041214
  3. PLAVIX [Concomitant]

REACTIONS (1)
  - ERECTILE DYSFUNCTION [None]
